FAERS Safety Report 8923442 (Version 1)
Quarter: 2012Q4

REPORT INFORMATION
  Report Type: Spontaneous
  Country: ZA (occurrence: None)
  Receive Date: 20121114
  Receipt Date: 20121114
  Transmission Date: 20130627
  Serious: Yes (Hospitalization)
  Sender: FDA-Public Use
  Company Number: B0843276A

PATIENT
  Age: 12 Year
  Sex: Male

DRUGS (8)
  1. AMIKACIN [Suspect]
     Indication: TUBERCULOSIS
  2. OFLOXACIN [Suspect]
     Indication: TUBERCULOSIS
  3. LAMIVUDINE-HIV [Suspect]
     Indication: ANTIVIRAL TREATMENT
  4. ABACAVIR SULPHATE [Suspect]
     Indication: ANTIVIRAL TREATMENT
  5. EFAVIRENZ [Suspect]
     Indication: ANTIVIRAL TREATMENT
  6. TERIZIDONE [Suspect]
     Indication: ANTIVIRAL TREATMENT
  7. THALIDOMIDE [Suspect]
     Indication: PRODUCT USED FOR UNKNOWN INDICATION
  8. PREDNISONE [Concomitant]

REACTIONS (11)
  - Stevens-Johnson syndrome [None]
  - Tuberculoma of central nervous system [None]
  - Hydrocephalus [None]
  - Nervous system disorder [None]
  - Intention tremor [None]
  - Cerebellar syndrome [None]
  - Brain oedema [None]
  - Intracranial pressure increased [None]
  - Immune reconstitution inflammatory syndrome associated tuberculosis [None]
  - Intracranial pressure increased [None]
  - Neurological decompensation [None]
